FAERS Safety Report 7265390-3 (Version None)
Quarter: 2011Q1

REPORT INFORMATION
  Report Type: 
  Country: None (occurrence: None)
  Receive Date: 20110131
  Receipt Date: 20110125
  Transmission Date: 20110831
  Serious: Yes (Hospitalization)
  Sender: FDA-Public Use
  Company Number: US-JNJCH-2011002160

PATIENT
  Age: 65 Year
  Sex: Female
  Weight: 48.3 kg

DRUGS (20)
  1. BENZTROPINE MESYLATE [Suspect]
     Indication: AKATHISIA
     Dosage: TEXT:1MG, 2X/DAY
     Route: 048
  2. CYMBALTA [Suspect]
     Dosage: TEXT:30MG, 1X/DAY
     Route: 048
     Dates: start: 20100701, end: 20100901
  3. PREDNISONE [Concomitant]
     Indication: PRODUCT USED FOR UNKNOWN INDICATION
     Dosage: TEXT:UNKNOWN
     Route: 065
     Dates: start: 20100112, end: 20100114
  4. FERROUS SULFATE TAB [Concomitant]
     Indication: PRODUCT USED FOR UNKNOWN INDICATION
     Dosage: TEXT:UNKNOWN
     Route: 065
  5. SOMA [Suspect]
     Indication: ANXIETY
     Dosage: TEXT:175MG, 3X/DAY
     Route: 048
  6. LORAZEPAM [Suspect]
     Indication: ANXIETY
     Dosage: TEXT:0.25MG, 3X/DAY
     Route: 048
     Dates: start: 20100630, end: 20100901
  7. CYMBALTA [Suspect]
     Indication: ANXIETY
     Dosage: TEXT:60MG, 1X/DAY
     Route: 048
  8. PROMETHAZINE [Concomitant]
     Indication: PRODUCT USED FOR UNKNOWN INDICATION
     Dosage: TEXT:UNKNOWN
     Route: 065
  9. EFFEXOR XR [Suspect]
     Indication: PRODUCT USED FOR UNKNOWN INDICATION
     Dosage: TEXT:150MG, 1X/DAY
     Route: 048
  10. ALBUTEROL [Concomitant]
     Indication: PRODUCT USED FOR UNKNOWN INDICATION
     Dosage: TEXT:UNKNOWN
     Route: 065
  11. MECLIZINE [Suspect]
     Indication: AKATHISIA
     Dosage: TEXT:12.5MG, 3X/DAY
     Route: 048
  12. SEROQUEL [Suspect]
     Indication: ANXIETY
     Dosage: TEXT:300MG, 2X/DAY
     Route: 048
  13. LAMOTRIGINE [Suspect]
     Indication: HALLUCINATION
     Dosage: TEXT:100MG, 1X/DAY
     Route: 048
  14. LORTAB [Suspect]
     Indication: RHEUMATOID ARTHRITIS
     Dosage: TEXT:7.5/500 MG
     Route: 048
  15. FOLIC ACID [Concomitant]
     Indication: PRODUCT USED FOR UNKNOWN INDICATION
     Dosage: TEXT:UNKNOWN
     Route: 065
  16. RISPERDAL [Suspect]
     Indication: PRODUCT USED FOR UNKNOWN INDICATION
     Dosage: TEXT:UNKNOWN
     Route: 065
     Dates: start: 20100901, end: 20100914
  17. OMEPRAZOLE [Concomitant]
     Indication: PRODUCT USED FOR UNKNOWN INDICATION
     Dosage: TEXT:UNKNOWN
     Route: 065
  18. METHOTREXATE [Suspect]
     Indication: RHEUMATOID ARTHRITIS
     Dosage: TEXT:10MG/WEEK TITRATED TO 20MG/WEEK
     Route: 048
     Dates: start: 20100225, end: 20101116
  19. LYRICA [Suspect]
     Indication: RHEUMATOID ARTHRITIS
     Dosage: TEXT:50MG, 3X/ DAY
     Route: 048
  20. METHOCARBAMOL [Suspect]
     Indication: MUSCLE RELAXANT THERAPY
     Dosage: TEXT:500MG, AS NEEDED
     Route: 048

REACTIONS (3)
  - WEIGHT DECREASED [None]
  - PSYCHOTIC DISORDER [None]
  - OFF LABEL USE [None]
